FAERS Safety Report 5064513-4 (Version None)
Quarter: 2006Q3

REPORT INFORMATION
  Report Type: 
  Country: None (occurrence: None)
  Receive Date: 20060728
  Receipt Date: 20060628
  Transmission Date: 20061208
  Serious: Yes (Hospitalization)
  Sender: FDA-Public Use
  Company Number: PHFR2006GB02108

PATIENT
  Age: 21 Year
  Sex: Male
  Weight: 72 kg

DRUGS (3)
  1. MYFORTIC [Suspect]
     Indication: RENAL TRANSPLANT
     Dosage: 1440MG/DAY
     Route: 048
     Dates: start: 20060323
  2. MYFORTIC [Suspect]
     Dosage: 1440 MG/DAY
     Route: 048
     Dates: start: 20060630
  3. MYCOPHENOLATE MOFETIL [Concomitant]
     Route: 042

REACTIONS (4)
  - MALAISE [None]
  - ORAL INTAKE REDUCED [None]
  - POSTOPERATIVE ILEUS [None]
  - VESICOURETERAL REFLUX SURGERY [None]
